FAERS Safety Report 17196706 (Version 1)
Quarter: 2019Q4

REPORT INFORMATION
  Report Type: Report from Study
  Country: CO (occurrence: CO)
  Receive Date: 20191224
  Receipt Date: 20191224
  Transmission Date: 20200122
  Serious: Yes (Other)
  Sender: FDA-Public Use
  Company Number: CO-JNJFOC-20161129427

PATIENT
  Age: 48 Year
  Sex: Female
  Weight: 57 kg

DRUGS (2)
  1. SIMPONI [Suspect]
     Active Substance: GOLIMUMAB
     Indication: ANKYLOSING SPONDYLITIS
     Route: 058
     Dates: start: 20161021
  2. SIMPONI [Suspect]
     Active Substance: GOLIMUMAB
     Route: 058
     Dates: start: 20161227

REACTIONS (9)
  - Fall [Recovering/Resolving]
  - Headache [Recovered/Resolved]
  - Back pain [Unknown]
  - Depressed mood [Recovered/Resolved]
  - Hypokinesia [Recovered/Resolved]
  - Dyspnoea [Unknown]
  - Contusion [Recovering/Resolving]
  - Wound [Recovering/Resolving]
  - Accident [Recovering/Resolving]

NARRATIVE: CASE EVENT DATE: 20161021
